FAERS Safety Report 19452879 (Version 1)
Quarter: 2021Q2

REPORT INFORMATION
  Report Type: Spontaneous
  Country: JP (occurrence: JP)
  Receive Date: 20210623
  Receipt Date: 20210623
  Transmission Date: 20210717
  Serious: Yes (Hospitalization)
  Sender: FDA-Public Use
  Company Number: JP-ASTRAZENECA-2021A539384

PATIENT
  Age: 53 Year
  Sex: Male
  Weight: 83 kg

DRUGS (8)
  1. OLMESARTAN [Concomitant]
     Active Substance: OLMESARTAN
     Route: 065
  2. PAROXETINE. [Concomitant]
     Active Substance: PAROXETINE
     Route: 065
  3. FORXIGA [Suspect]
     Active Substance: DAPAGLIFLOZIN
     Indication: CARDIAC FAILURE CHRONIC
     Route: 048
  4. ALLOPURINOL. [Concomitant]
     Active Substance: ALLOPURINOL
     Route: 065
  5. SPIRONOLACTONE. [Concomitant]
     Active Substance: SPIRONOLACTONE
     Route: 065
  6. CARVEDILOL. [Concomitant]
     Active Substance: CARVEDILOL
     Route: 065
  7. ENALAPRIL [Concomitant]
     Active Substance: ENALAPRIL
     Route: 065
  8. LIXIANA [Concomitant]
     Active Substance: EDOXABAN TOSYLATE
     Route: 065

REACTIONS (2)
  - Drug eruption [Unknown]
  - Sleep disorder due to a general medical condition [Unknown]
